FAERS Safety Report 9419257 (Version 1)
Quarter: 2013Q3

REPORT INFORMATION
  Report Type: Spontaneous
  Country: US (occurrence: US)
  Receive Date: 20130725
  Receipt Date: 20130725
  Transmission Date: 20140515
  Serious: No
  Sender: FDA-Public Use
  Company Number: US-GLAXOSMITHKLINE-A0990981A

PATIENT
  Age: 24 Year
  Sex: Female
  Weight: 63.2 kg

DRUGS (2)
  1. LAMICTAL XR [Suspect]
     Indication: CONVULSION
     Dosage: 600MG PER DAY
     Route: 065
     Dates: start: 20110414
  2. FOLIC ACID [Concomitant]

REACTIONS (5)
  - Aura [Recovering/Resolving]
  - Exposure during pregnancy [Unknown]
  - Toxicity to various agents [Recovered/Resolved]
  - Toxicity to various agents [Unknown]
  - Live birth [Unknown]
